FAERS Safety Report 6635847-4 (Version None)
Quarter: 2010Q1

REPORT INFORMATION
  Report Type: 
  Country: None (occurrence: None)
  Receive Date: 20100311
  Receipt Date: 20100225
  Transmission Date: 20100710
  Serious: Yes (Hospitalization)
  Sender: FDA-Public Use
  Company Number: 2010SP000644

PATIENT
  Age: 43 Year
  Sex: Female

DRUGS (6)
  1. XOPENEX [Suspect]
  2. MONTELUKAST SODIUM [Concomitant]
  3. ESOMEPRAZOLE [Concomitant]
  4. FLUTICASONE PROPIONATE W/SALMETEROL [Concomitant]
  5. IPRATROPIUM [Concomitant]
  6. ALBUTEROL [Concomitant]

REACTIONS (3)
  - ASTHMA [None]
  - CHEST PAIN [None]
  - GLOMUS TUMOUR [None]
